FAERS Safety Report 25356022 (Version 1)
Quarter: 2025Q2

REPORT INFORMATION
  Report Type: Spontaneous
  Country: US (occurrence: US)
  Receive Date: 20250525
  Receipt Date: 20250525
  Transmission Date: 20250717
  Serious: No
  Sender: APELLIS PHARMACEUTICALS
  Company Number: US-APELLIS-2025-APL-0001121

PATIENT

DRUGS (16)
  1. SYFOVRE [Suspect]
     Active Substance: PEGCETACOPLAN
     Indication: Product used for unknown indication
     Route: 031
  2. FLONASE [Concomitant]
     Active Substance: FLUTICASONE PROPIONATE
     Indication: Product used for unknown indication
     Route: 045
  3. ZYRTEC [Concomitant]
     Active Substance: CETIRIZINE HYDROCHLORIDE
     Indication: Product used for unknown indication
     Dosage: QDAY BY MOUTH
     Route: 048
  4. SINGULAIR [Concomitant]
     Active Substance: MONTELUKAST SODIUM
     Indication: Product used for unknown indication
     Dosage: QDAY BY MOUTH
     Route: 048
  5. MAGNESIUM [Concomitant]
     Active Substance: MAGNESIUM
     Indication: Product used for unknown indication
     Dosage: QDAY BY MOUTH
     Route: 048
  6. CALCIUM [Concomitant]
     Active Substance: CALCIUM
     Indication: Product used for unknown indication
     Dosage: QDAY BY MOUTH
     Route: 048
  7. VITAMINS [Concomitant]
     Active Substance: VITAMINS
     Indication: Product used for unknown indication
     Dosage: QDAY BY MOUTH
     Route: 048
  8. ZEGERID [Concomitant]
     Active Substance: OMEPRAZOLE\SODIUM BICARBONATE
     Indication: Product used for unknown indication
     Dosage: QDAY BY MOUTH
     Route: 048
  9. Artificial tears [Concomitant]
     Indication: Product used for unknown indication
     Route: 047
  10. MINERALS\VITAMINS [Concomitant]
     Active Substance: MINERALS\VITAMINS
     Indication: Product used for unknown indication
     Dosage: 1 TABLET BID BY MOUTH
     Route: 048
  11. Resveratrol, Curcumin, Quercetin Vitamin [Concomitant]
     Indication: Product used for unknown indication
     Route: 048
  12. MAXITROL [Concomitant]
     Active Substance: DEXAMETHASONE\NEOMYCIN SULFATE\POLYMYXIN B SULFATE
     Indication: Product used for unknown indication
     Route: 047
  13. PROPARACAINE [Concomitant]
     Active Substance: PROPARACAINE
     Indication: Product used for unknown indication
  14. PHENYLEPHRINE [Concomitant]
     Active Substance: PHENYLEPHRINE
     Indication: Product used for unknown indication
  15. TROPICAMIDE [Concomitant]
     Active Substance: TROPICAMIDE
  16. CHLORHEXIDINE GLUCONATE [Concomitant]
     Active Substance: CHLORHEXIDINE GLUCONATE
     Indication: Product used for unknown indication

REACTIONS (18)
  - Visual impairment [Unknown]
  - Hyalosis asteroid [Unknown]
  - Giant papillary conjunctivitis [Recovering/Resolving]
  - Dry age-related macular degeneration [Unknown]
  - Dry age-related macular degeneration [Unknown]
  - Ocular hypertension [Unknown]
  - Cataract [Unknown]
  - Cataract [Unknown]
  - Macular oedema [Unknown]
  - Pupillary reflex impaired [Unknown]
  - Dry eye [Unknown]
  - Dry eye [Unknown]
  - Epiretinal membrane [Unknown]
  - Vitreous detachment [Unknown]
  - Vitreous detachment [Unknown]
  - Borderline glaucoma [Unknown]
  - Borderline glaucoma [Unknown]
  - Disease progression [Unknown]
